FAERS Safety Report 11281197 (Version 12)
Quarter: 2020Q3

REPORT INFORMATION
  Report Type: Spontaneous
  Country: US (occurrence: US)
  Receive Date: 20150717
  Receipt Date: 20200825
  Transmission Date: 20201102
  Serious: Yes (Other)
  Sender: FDA-Public Use
  Company Number: US-PFIZER INC-2015234771

PATIENT
  Age: 70 Year
  Sex: Female

DRUGS (27)
  1. LYRICA [Suspect]
     Active Substance: PREGABALIN
     Dosage: 100 MG, AS NEEDED (100 MG 1 CAPSULE ORALLY BID PRN,90 DAYS ,180 CAPSULE, REFILLS: 0)
     Route: 048
  2. ALLERGY RELIEF [Concomitant]
     Dosage: 10 MG, 1X/DAY
     Route: 048
  3. LOMOTIL [Concomitant]
     Active Substance: ATROPINE SULFATE\DIPHENOXYLATE HYDROCHLORIDE
     Dosage: 4X/DAY (1 OR 2 TABLETS OF 2.5?0.025 MG BEFORE MEALS AND AT BEDTIME)
     Route: 048
  4. CORTISPORIN (HYDROCORTISONE ACETATE\NEOMYCIN SULFATE\POLYMYXIN B SULFATE) [Concomitant]
     Active Substance: HYDROCORTISONE\HYDROCORTISONE ACETATE\NEOMYCIN SULFATE\POLYMYXIN B SULFATE
     Indication: EAR DISORDER
     Dosage: 1 %?0.35 %?1000 IU/ML AT 2?5 DROPS INTO EACH AFFECTED EAR 2X/DAY (10 DAYS), AS NEEDED
  5. LEVOTHYROXINE SODIUM. [Concomitant]
     Active Substance: LEVOTHYROXINE SODIUM
     Dosage: 100 UG, 1X/DAY (ON AN EMPTY STOMACH IN THE MORNING)
     Route: 048
  6. OMEPRAZOLE. [Concomitant]
     Active Substance: OMEPRAZOLE
     Dosage: 20 MG, DAILY
     Route: 048
  7. AZITHROMYCIN ANHYDROUS. [Concomitant]
     Active Substance: AZITHROMYCIN ANHYDROUS
     Dosage: 500 MG ON THE FIRST DAY THEN 250 MG DAILY FOR 4 DAYS, AS NEEDED
     Route: 048
  8. LOVASTATIN. [Concomitant]
     Active Substance: LOVASTATIN
     Dosage: 80 MG 1X/DAY, AS NEEDED (WITH A MEAL ORALLY ONCE A DAY AT BEDTIME)
     Route: 048
  9. PIOGLITAZONE HYDROCHLORIDE. [Concomitant]
     Active Substance: PIOGLITAZONE HYDROCHLORIDE
     Dosage: 30 MG 1X/DAY, AS NEEDED
     Route: 048
  10. METOPROLOL TARTRATE. [Concomitant]
     Active Substance: METOPROLOL TARTRATE
     Dosage: 25 MG, 2X/DAY
     Route: 048
  11. DIFLUCAN [Concomitant]
     Active Substance: FLUCONAZOLE
     Dosage: 150 MG 1X/DAY, AS NEEDED
     Route: 048
  12. ZOLPIDEM TARTATE [Concomitant]
     Active Substance: ZOLPIDEM TARTRATE
     Dosage: 10 MG 1X/DAY (AT BEDTIME), AS NEEDED
     Route: 048
  13. LYRICA [Suspect]
     Active Substance: PREGABALIN
     Indication: DIABETIC NEUROPATHY
     Dosage: UNK
  14. GLIPIZIDE. [Concomitant]
     Active Substance: GLIPIZIDE
     Dosage: 10 MG, 2X/DAY (EVERY 12 HOURS)
     Route: 048
  15. IBUPROFEN. [Concomitant]
     Active Substance: IBUPROFEN
     Dosage: 800 MG, 3X/DAY
     Route: 048
  16. ATORVASTATIN CALCIUM. [Concomitant]
     Active Substance: ATORVASTATIN CALCIUM
     Dosage: 40 MG, 1X/DAY (AT BEDTIME)
     Route: 048
  17. LANTUS SOLOSTAR [Concomitant]
     Active Substance: INSULIN GLARGINE
     Dosage: 25 IU, 1X/DAY (EVERY MORNING)
     Route: 058
  18. CALCIUM [Concomitant]
     Active Substance: CALCIUM
     Dosage: 500 MG 2X/DAY, AS NEEDED (WITH MEALS)
     Route: 048
  19. CLONAZEPAM. [Concomitant]
     Active Substance: CLONAZEPAM
     Dosage: 1 MG, DAILY
     Route: 048
  20. SERTRALINE HYDROCHLORIDE. [Concomitant]
     Active Substance: SERTRALINE HYDROCHLORIDE
     Dosage: 50 MG, 1X/DAY
     Route: 048
  21. GEMFIBROZIL. [Concomitant]
     Active Substance: GEMFIBROZIL
     Dosage: 600 MG 2X/DAY, AS NEEDED
     Route: 048
  22. PROMETHAZINE HYDROCHLORIDE. [Concomitant]
     Active Substance: PROMETHAZINE HYDROCHLORIDE
     Dosage: 25 MG 2X/DAY (EVERY 12 HOURS), AS NEEDED
     Route: 048
  23. TRAMADOL AND ACETAMINOPHEN [Concomitant]
     Active Substance: ACETAMINOPHEN\TRAMADOL HYDROCHLORIDE
     Dosage: 37.5MG(TRAMADOL)?325 MG(ACETAMINOFEN) 4X/DAY (EVERY 6 HOURS), AS NEEDED
     Route: 048
  24. LISINOPRIL. [Concomitant]
     Active Substance: LISINOPRIL
     Dosage: 40 MG, DAILY
     Route: 048
  25. MAGNESIUM OXIDE. [Concomitant]
     Active Substance: MAGNESIUM OXIDE
     Dosage: 800 MG, 2X/DAY (EVERY 12 HOURS)
     Route: 048
  26. VICTOZA [Concomitant]
     Active Substance: LIRAGLUTIDE
     Dosage: (18 MG/3 ML) 0.2 ML, 1X/DAY
     Route: 058
  27. VITAMIN D [Concomitant]
     Active Substance: VITAMIN D NOS
     Dosage: 50000 IU WEEKLY, AS NEEDED
     Route: 048

REACTIONS (6)
  - Hypoacusis [Unknown]
  - Feeling hot [Unknown]
  - Arthralgia [Unknown]
  - Burning sensation [Unknown]
  - Cyst [Unknown]
  - Insomnia [Unknown]
